FAERS Safety Report 24113542 (Version 1)
Quarter: 2024Q3

REPORT INFORMATION
  Report Type: Spontaneous
  Country: DE (occurrence: DE)
  Receive Date: 20240720
  Receipt Date: 20240720
  Transmission Date: 20241017
  Serious: Yes (Other)
  Sender: MLV PHARMA
  Company Number: DE-MPL-000051

PATIENT
  Age: 18 Year
  Sex: Female

DRUGS (2)
  1. PYRIDOSTIGMINE [Suspect]
     Active Substance: PYRIDOSTIGMINE
     Indication: Autonomic failure syndrome
     Route: 048
  2. PYRIDOSTIGMINE [Suspect]
     Active Substance: PYRIDOSTIGMINE
     Indication: Autonomic failure syndrome
     Route: 042

REACTIONS (2)
  - Autonomic failure syndrome [Unknown]
  - Drug ineffective [Unknown]
